FAERS Safety Report 23045091 (Version 1)
Quarter: 2023Q4

REPORT INFORMATION
  Report Type: Spontaneous
  Country: US (occurrence: US)
  Receive Date: 20231009
  Receipt Date: 20231009
  Transmission Date: 20240109
  Serious: No
  Sender: FDA-Public Use
  Company Number: US-BRISTOL-MYERS SQUIBB COMPANY-2023-137208

PATIENT
  Age: 74 Year
  Sex: Male
  Weight: 71.67 kg

DRUGS (2)
  1. ELIQUIS [Interacting]
     Active Substance: APIXABAN
     Indication: Atrial fibrillation
     Dosage: UNK
  2. TIKOSYN [Interacting]
     Active Substance: DOFETILIDE
     Dosage: QUANTITY FOR 90 DAYS: 1801 CAPSULE CAPSULE BY MOUTH TWO TIMES DAILY
     Route: 048

REACTIONS (1)
  - Drug interaction [Unknown]
